FAERS Safety Report 4545899-3 (Version None)
Quarter: 2005Q1

REPORT INFORMATION
  Report Type: 
  Country: None (occurrence: None)
  Receive Date: 20050103
  Receipt Date: 20041223
  Transmission Date: 20050727
  Serious: Yes (Other)
  Sender: FDA-Public Use
  Company Number: 2004076841

PATIENT
  Sex: Male

DRUGS (1)
  1. NEURONTIN [Suspect]
     Indication: MENTAL DISORDER
     Dosage: 1800 MG (600 MG,3 IN 1 D )

REACTIONS (2)
  - ECONOMIC PROBLEM [None]
  - TREATMENT NONCOMPLIANCE [None]
